FAERS Safety Report 22255405 (Version 2)
Quarter: 2023Q2

REPORT INFORMATION
  Report Type: Spontaneous
  Country: PL (occurrence: PL)
  Receive Date: 20230426
  Receipt Date: 20230518
  Transmission Date: 20230721
  Serious: Yes (Other)
  Sender: FDA-Public Use
  Company Number: PL-ROCHE-3332903

PATIENT
  Age: 38 Year
  Sex: Male

DRUGS (2)
  1. RITUXIMAB [Suspect]
     Active Substance: RITUXIMAB
     Indication: Myasthenia gravis
     Dosage: 2 G
     Route: 065
  2. CYCLOPHOSPHAMIDE [Suspect]
     Active Substance: CYCLOPHOSPHAMIDE
     Indication: Myasthenia gravis
     Dosage: 7 G
     Route: 065

REACTIONS (8)
  - Eosinophilic granulomatosis with polyangiitis [Unknown]
  - Choking [Unknown]
  - Fatigue [Unknown]
  - Depression [Unknown]
  - Negative thoughts [Unknown]
  - Respiration abnormal [Unknown]
  - Incorrect dose administered [Unknown]
  - Off label use [Unknown]
